FAERS Safety Report 19733610 (Version 1)
Quarter: 2021Q3

REPORT INFORMATION
  Report Type: Spontaneous
  Country: CN (occurrence: CN)
  Receive Date: 20210823
  Receipt Date: 20210823
  Transmission Date: 20211014
  Serious: Yes (Hospitalization)
  Sender: FDA-Public Use
  Company Number: CN-JNJFOC-20210830599

PATIENT
  Age: 17 Year
  Sex: Male

DRUGS (1)
  1. TYLENOL 8HR [Suspect]
     Active Substance: ACETAMINOPHEN
     Indication: PYREXIA
     Dosage: TOTAL 4 TABLETS WERE TAKEN WITHIN 2 DAYS, TOOK THE DRUG FOR MORE THAN 8 HOURS EACH TIME, 1ST TABLET
     Route: 048
     Dates: start: 202107

REACTIONS (1)
  - Drug-induced liver injury [Recovered/Resolved]

NARRATIVE: CASE EVENT DATE: 202107
